FAERS Safety Report 8518271-9 (Version None)
Quarter: 2012Q3

REPORT INFORMATION
  Report Type: 
  Country: None (occurrence: None)
  Receive Date: 20120718
  Receipt Date: 20120210
  Transmission Date: 20120928
  Serious: Yes (Hospitalization)
  Sender: FDA-Public Use
  Company Number: US-BRISTOL-MYERS SQUIBB COMPANY-16300956

PATIENT
  Sex: Female

DRUGS (2)
  1. COUMADIN [Suspect]
  2. VITAMIN K TAB [Interacting]

REACTIONS (1)
  - BLOOD URINE PRESENT [None]
